FAERS Safety Report 10254737 (Version 1)
Quarter: 2014Q2

REPORT INFORMATION
  Report Type: Report from Study
  Country: CA (occurrence: CA)
  Receive Date: 20140624
  Receipt Date: 20140624
  Transmission Date: 20141212
  Serious: Yes (Other)
  Sender: FDA-Public Use
  Company Number: CA-ELI_LILLY_AND_COMPANY-CA201406004924

PATIENT
  Age: 87 Year
  Sex: Male

DRUGS (10)
  1. TERIPARATIDE [Suspect]
     Indication: OSTEOPOROSIS
     Dosage: 20 UG, QD
     Route: 058
     Dates: start: 20140611
  2. SOTALOL [Concomitant]
  3. COUMADIN                           /00014802/ [Concomitant]
  4. IRBESARTAN [Concomitant]
  5. FINASTERIDE [Concomitant]
  6. ROSUVASTATIN [Concomitant]
  7. CALCIUM [Concomitant]
  8. VITAMIN D NOS [Concomitant]
  9. TYLENOL EXTRA-STRENGTH [Concomitant]
     Dosage: UNK, PRN
  10. TYLENOL REGULAR [Concomitant]
     Dosage: UNK, PRN

REACTIONS (2)
  - Atrial fibrillation [Recovered/Resolved]
  - Orthostatic hypotension [Recovered/Resolved]
